FAERS Safety Report 19934369 (Version 4)
Quarter: 2022Q1

REPORT INFORMATION
  Report Type: Report from Study
  Country: US (occurrence: US)
  Receive Date: 20211008
  Receipt Date: 20220131
  Transmission Date: 20220424
  Serious: Yes (Hospitalization, Other)
  Sender: FDA-Public Use
  Company Number: US-TAKEDA-2021TUS053748

PATIENT
  Age: 59 Year
  Sex: Female

DRUGS (12)
  1. TEDUGLUTIDE [Suspect]
     Active Substance: TEDUGLUTIDE
     Indication: Short-bowel syndrome
     Dosage: 2.28 MILLIGRAM, QD
     Route: 058
     Dates: start: 20210722
  2. TEDUGLUTIDE [Suspect]
     Active Substance: TEDUGLUTIDE
     Indication: Short-bowel syndrome
     Dosage: 2.28 MILLIGRAM, QD
     Route: 058
     Dates: start: 20210722
  3. TEDUGLUTIDE [Suspect]
     Active Substance: TEDUGLUTIDE
     Indication: Short-bowel syndrome
     Dosage: 2.28 MILLIGRAM, QD
     Route: 058
     Dates: start: 20210722
  4. TEDUGLUTIDE [Suspect]
     Active Substance: TEDUGLUTIDE
     Indication: Short-bowel syndrome
     Dosage: 2.28 MILLIGRAM, QD
     Route: 058
     Dates: start: 20210722
  5. TEDUGLUTIDE [Suspect]
     Active Substance: TEDUGLUTIDE
     Dosage: 2.28 MILLIGRAM, QD
     Route: 058
     Dates: start: 20210723
  6. TEDUGLUTIDE [Suspect]
     Active Substance: TEDUGLUTIDE
     Dosage: 2.28 MILLIGRAM, QD
     Route: 058
     Dates: start: 20210723
  7. TEDUGLUTIDE [Suspect]
     Active Substance: TEDUGLUTIDE
     Dosage: 2.28 MILLIGRAM, QD
     Route: 058
     Dates: start: 20210723
  8. TEDUGLUTIDE [Suspect]
     Active Substance: TEDUGLUTIDE
     Dosage: 2.28 MILLIGRAM, QD
     Route: 058
     Dates: start: 20210723
  9. TEDUGLUTIDE [Suspect]
     Active Substance: TEDUGLUTIDE
     Dosage: 2.28 MILLIGRAM, QD
     Route: 058
     Dates: start: 202107
  10. TEDUGLUTIDE [Suspect]
     Active Substance: TEDUGLUTIDE
     Dosage: 2.28 MILLIGRAM, QD
     Route: 058
     Dates: start: 202107
  11. TEDUGLUTIDE [Suspect]
     Active Substance: TEDUGLUTIDE
     Dosage: 2.28 MILLIGRAM, QD
     Route: 058
     Dates: start: 202107
  12. TEDUGLUTIDE [Suspect]
     Active Substance: TEDUGLUTIDE
     Dosage: 2.28 MILLIGRAM, QD
     Route: 058
     Dates: start: 202107

REACTIONS (11)
  - Hernia [Unknown]
  - Stoma complication [Unknown]
  - Weight decreased [Unknown]
  - Decreased appetite [Unknown]
  - Contusion [Unknown]
  - Headache [Recovered/Resolved]
  - Malaise [Unknown]
  - Abdominal pain [Recovered/Resolved]
  - Abdominal distension [Unknown]
  - Therapy interrupted [Recovered/Resolved]
  - Product dose omission issue [Unknown]

NARRATIVE: CASE EVENT DATE: 20211130
